FAERS Safety Report 12178647 (Version 1)
Quarter: 2016Q1

REPORT INFORMATION
  Report Type: Spontaneous
  Country: US (occurrence: US)
  Receive Date: 20160314
  Receipt Date: 20160314
  Transmission Date: 20160526
  Serious: No
  Sender: FDA-Public Use
  Company Number: US-SA-2016SA018217

PATIENT
  Age: 80 Year
  Sex: Male

DRUGS (2)
  1. TOUJEO [Suspect]
     Active Substance: INSULIN GLARGINE
     Route: 065
     Dates: start: 20160101, end: 20160125
  2. SOLOSTAR [Concomitant]
     Active Substance: DEVICE
     Dates: start: 20160101, end: 20160125

REACTIONS (1)
  - Drug ineffective [Unknown]
